FAERS Safety Report 4374656-6 (Version None)
Quarter: 2004Q2

REPORT INFORMATION
  Report Type: 
  Country: None (occurrence: None)
  Receive Date: 20040604
  Receipt Date: 20040524
  Transmission Date: 20050107
  Serious: Yes (Hospitalization)
  Sender: FDA-Public Use
  Company Number: 2004215030US

PATIENT
  Age: 61 Year
  Sex: Female

DRUGS (2)
  1. DETROL LA [Suspect]
     Indication: MICTURITION URGENCY
     Dosage: 4MG, QD, ORAL
     Route: 048
     Dates: start: 20040101
  2. EYE DROPS [Concomitant]

REACTIONS (7)
  - ABDOMINAL PAIN UPPER [None]
  - CEREBROVASCULAR ACCIDENT [None]
  - DIZZINESS [None]
  - DRUG INTERACTION [None]
  - DRY MOUTH [None]
  - MIGRAINE [None]
  - VISION BLURRED [None]
